FAERS Safety Report 18839368 (Version 1)
Quarter: 2021Q1

REPORT INFORMATION
  Report Type: Report from Study
  Country: CA (occurrence: CA)
  Receive Date: 20210203
  Receipt Date: 20210203
  Transmission Date: 20210419
  Serious: Yes (Hospitalization, Other)
  Sender: FDA-Public Use
  Company Number: CA-MYLANLABS-2020M1096518

PATIENT
  Sex: Female

DRUGS (19)
  1. MIRTAZAPINE. [Concomitant]
     Active Substance: MIRTAZAPINE
     Dosage: 45 MILLIGRAM, PM
  2. LANCORA [Concomitant]
     Active Substance: IVABRADINE
     Dosage: 5 MILLIGRAM, BID
  3. CLOZAPINE. [Suspect]
     Active Substance: CLOZAPINE
     Dosage: UNK
     Dates: start: 2016, end: 202012
  4. PANTOLOC                           /01263204/ [Concomitant]
     Active Substance: PANTOPRAZOLE SODIUM
     Dosage: 40 MILLIGRAM
  5. CALCIUM [Concomitant]
     Active Substance: CALCIUM
     Dosage: 500 MILLIGRAM
  6. ADVAIR HFA [Concomitant]
     Active Substance: FLUTICASONE PROPIONATE\SALMETEROL XINAFOATE
     Dosage: UNK
  7. SEROQUEL [Concomitant]
     Active Substance: QUETIAPINE FUMARATE
     Dosage: 100 MILLIGRAM, TID
  8. CELEBREX [Concomitant]
     Active Substance: CELECOXIB
     Dosage: 200 MILLIGRAM
  9. CLONAZEPAM. [Concomitant]
     Active Substance: CLONAZEPAM
     Dosage: 0.5 MILLIGRAM, BID
  10. CLOZAPINE. [Suspect]
     Active Substance: CLOZAPINE
     Indication: SCHIZOPHRENIA
     Dosage: UNK
     Dates: start: 201608, end: 20201110
  11. ABILIFY [Concomitant]
     Active Substance: ARIPIPRAZOLE
     Dosage: 15 MG AM+HS
  12. TEMAZEPAM. [Concomitant]
     Active Substance: TEMAZEPAM
     Dosage: 45 MILLIGRAM, PM
  13. SPIRIVA [Concomitant]
     Active Substance: TIOTROPIUM BROMIDE MONOHYDRATE
     Dosage: UNK
  14. FLORINEF ACETATE [Concomitant]
     Active Substance: FLUDROCORTISONE ACETATE
     Dosage: 0.1 MILLIGRAM
  15. RISEDRONATE [Concomitant]
     Active Substance: RISEDRONATE SODIUM
     Dosage: UNK
  16. VENTOLIN [Concomitant]
     Active Substance: ALBUTEROL SULFATE
     Dosage: UNK, PRN
  17. VITAMIN B12 [Concomitant]
     Active Substance: CYANOCOBALAMIN
     Dosage: UNK, 1000U
  18. ROSUVASTATIN. [Concomitant]
     Active Substance: ROSUVASTATIN
     Dosage: 5 MILLIGRAM
  19. VITAMIN D3 [Concomitant]
     Active Substance: CHOLECALCIFEROL

REACTIONS (3)
  - Malaise [Unknown]
  - Schizophrenia [Unknown]
  - Orthostatic hypotension [Unknown]
